FAERS Safety Report 8586617-1 (Version None)
Quarter: 2012Q3

REPORT INFORMATION
  Report Type: 
  Country: None (occurrence: None)
  Receive Date: 20120810
  Receipt Date: 20120801
  Transmission Date: 20120928
  Serious: Yes (Other)
  Sender: FDA-Public Use
  Company Number: US-JNJFOC-20120102651

PATIENT
  Sex: Female
  Weight: 54.43 kg

DRUGS (12)
  1. OMEPRAZOLE [Concomitant]
     Indication: GASTROOESOPHAGEAL REFLUX DISEASE
     Route: 048
  2. RISPERIDONE [Suspect]
     Indication: SLEEP DISORDER
     Route: 048
     Dates: start: 20110501, end: 20111201
  3. RISPERIDONE [Suspect]
     Route: 048
     Dates: start: 20120728
  4. RISPERIDONE [Suspect]
     Route: 048
  5. NORVASC [Concomitant]
     Indication: PRODUCT USED FOR UNKNOWN INDICATION
     Route: 048
  6. LISINOPRIL [Concomitant]
     Indication: HYPERTENSION
     Route: 048
  7. RISPERIDONE [Suspect]
     Route: 048
     Dates: start: 20120728
  8. VITAMINS NOS [Concomitant]
     Indication: DECREASED APPETITE
     Route: 065
     Dates: start: 20120401
  9. RISPERIDONE [Suspect]
     Indication: DEMENTIA
     Route: 048
     Dates: start: 20110501, end: 20111201
  10. RISPERIDONE [Suspect]
     Route: 048
  11. GALANTAMINE HYDROBROMIDE [Concomitant]
     Indication: MEMORY IMPAIRMENT
     Route: 048
  12. POTASSIUM [Concomitant]
     Indication: PRODUCT USED FOR UNKNOWN INDICATION
     Route: 048

REACTIONS (16)
  - DROOLING [None]
  - ANGER [None]
  - FALL [None]
  - ABNORMAL LOSS OF WEIGHT [None]
  - SOCIAL AVOIDANT BEHAVIOUR [None]
  - FEELING ABNORMAL [None]
  - HAEMORRHAGE INTRACRANIAL [None]
  - HALLUCINATION [None]
  - COUGH [None]
  - SALIVARY HYPERSECRETION [None]
  - OFF LABEL USE [None]
  - MOOD SWINGS [None]
  - DECREASED APPETITE [None]
  - HIP FRACTURE [None]
  - SUICIDAL IDEATION [None]
  - DISTURBANCE IN SOCIAL BEHAVIOUR [None]
